FAERS Safety Report 8218276-1 (Version None)
Quarter: 2012Q1

REPORT INFORMATION
  Report Type: 
  Country: None (occurrence: None)
  Receive Date: 20120316
  Receipt Date: 20120316
  Transmission Date: 20120608
  Serious: Yes (Other)
  Sender: FDA-Public Use
  Company Number: None

PATIENT
  Sex: Female
  Weight: 85 kg

DRUGS (2)
  1. DITROPAN XL [Suspect]
     Indication: URINARY INCONTINENCE
     Dosage: 15MG ONE DAILY ORAL
     Route: 048
     Dates: start: 20061224
  2. DITROPAN XL [Suspect]
     Indication: URINARY INCONTINENCE
     Dosage: 15MG ONE DAILY ORAL
     Route: 048
     Dates: start: 20090901

REACTIONS (4)
  - PRURITUS [None]
  - FLUID RETENTION [None]
  - URTICARIA [None]
  - OEDEMA PERIPHERAL [None]
